FAERS Safety Report 21469471 (Version 6)
Quarter: 2023Q1

REPORT INFORMATION
  Report Type: Report from Study
  Country: US (occurrence: US)
  Receive Date: 20221018
  Receipt Date: 20230214
  Transmission Date: 20230418
  Serious: Yes (Other)
  Sender: FDA-Public Use
  Company Number: US-NOVARTISPH-NVSC2022US232943

PATIENT
  Age: 51 Year
  Sex: Female

DRUGS (2)
  1. KESIMPTA [Suspect]
     Active Substance: OFATUMUMAB
     Indication: Multiple sclerosis
     Dosage: 20 MG, QMO
     Route: 058
     Dates: start: 20221006
  2. BENADRYL [Concomitant]
     Active Substance: DIPHENHYDRAMINE HYDROCHLORIDE
     Indication: Product used for unknown indication
     Dosage: UNK
     Route: 065

REACTIONS (19)
  - Seizure like phenomena [Recovering/Resolving]
  - Chills [Unknown]
  - Burning sensation [Unknown]
  - Throat tightness [Unknown]
  - Malaise [Unknown]
  - Hyperhidrosis [Unknown]
  - Vision blurred [Unknown]
  - Deformity [Recovering/Resolving]
  - Dyskinesia [Recovering/Resolving]
  - Movement disorder [Recovering/Resolving]
  - Oropharyngeal pain [Recovering/Resolving]
  - Feeling of body temperature change [Recovering/Resolving]
  - Multiple sclerosis [Unknown]
  - Depression [Not Recovered/Not Resolved]
  - Taste disorder [Unknown]
  - White blood cell count increased [Unknown]
  - Fatigue [Not Recovered/Not Resolved]
  - Nausea [Not Recovered/Not Resolved]
  - Headache [Not Recovered/Not Resolved]

NARRATIVE: CASE EVENT DATE: 20221006
